FAERS Safety Report 15643649 (Version 6)
Quarter: 2019Q1

REPORT INFORMATION
  Report Type: Report from Study
  Country: US (occurrence: US)
  Receive Date: 20181121
  Receipt Date: 20190103
  Transmission Date: 20190417
  Serious: Yes (Other)
  Sender: FDA-Public Use
  Company Number: US-SHIRE-US201844749

PATIENT
  Sex: Female

DRUGS (1)
  1. TEDUGLUTIDE [Suspect]
     Active Substance: TEDUGLUTIDE
     Indication: PRODUCT USED FOR UNKNOWN INDICATION
     Dosage: UNK, 1X/DAY:QD
     Route: 050
     Dates: start: 20171122

REACTIONS (3)
  - Dehydration [Unknown]
  - Vomiting [Recovering/Resolving]
  - Vocal cord disorder [Recovering/Resolving]
